APPROVED DRUG PRODUCT: BELDIN
Active Ingredient: DIPHENHYDRAMINE HYDROCHLORIDE
Strength: 12.5MG/5ML
Dosage Form/Route: SYRUP;ORAL
Application: A089179 | Product #001
Applicant: HALSEY DRUG CO INC
Approved: Jun 5, 1986 | RLD: No | RS: No | Type: DISCN